FAERS Safety Report 7070524-X (Version None)
Quarter: 2010Q4

REPORT INFORMATION
  Report Type: 
  Country: None (occurrence: None)
  Receive Date: 20101029
  Receipt Date: 20101021
  Transmission Date: 20110411
  Serious: Yes (Other)
  Sender: FDA-Public Use
  Company Number: US-JNJFOC-20101007039

PATIENT
  Sex: Male
  Weight: 24.95 kg

DRUGS (4)
  1. CONCERTA [Suspect]
     Indication: ATTENTION DEFICIT/HYPERACTIVITY DISORDER
     Route: 048
  2. ZYRTEC [Concomitant]
     Indication: MULTIPLE ALLERGIES
     Route: 048
  3. MIRALAX [Concomitant]
     Indication: CONSTIPATION
     Dosage: 2 TSP
     Route: 048
  4. ADVAIR DISKUS 100/50 [Concomitant]
     Indication: ASTHMA
     Dosage: 2 PUFFS
     Route: 055

REACTIONS (2)
  - ALOPECIA [None]
  - MADAROSIS [None]
